FAERS Safety Report 20649611 (Version 1)
Quarter: 2022Q1

REPORT INFORMATION
  Report Type: Spontaneous
  Country: US (occurrence: None)
  Receive Date: 20220329
  Receipt Date: 20220329
  Transmission Date: 20220423
  Serious: Yes (Disabling)
  Sender: FDA-Public Use
  Company Number: None

PATIENT
  Age: 41 Year
  Sex: Female
  Weight: 72 kg

DRUGS (1)
  1. SUBOXONE [Suspect]
     Active Substance: BUPRENORPHINE HYDROCHLORIDE\NALOXONE HYDROCHLORIDE
     Indication: Drug dependence
     Dosage: OTHER QUANTITY : 1 1;?FREQUENCY : TWICE A DAY;?
     Route: 060
     Dates: start: 20210908, end: 20220329

REACTIONS (4)
  - Tooth erosion [None]
  - Tooth loss [None]
  - Tooth fracture [None]
  - Tooth discolouration [None]

NARRATIVE: CASE EVENT DATE: 20220131
